FAERS Safety Report 17900530 (Version 1)
Quarter: 2020Q2

REPORT INFORMATION
  Report Type: Spontaneous
  Country: GB (occurrence: GB)
  Receive Date: 20200616
  Receipt Date: 20200616
  Transmission Date: 20200714
  Serious: Yes (Life-Threatening, Other)
  Sender: FDA-Public Use
  Company Number: GB-TEVA-2020-GB-1247789

PATIENT
  Age: 73 Year
  Sex: Male

DRUGS (13)
  1. LOSARTAN POTASSIUM. [Concomitant]
     Active Substance: LOSARTAN POTASSIUM
  2. WARFARIN [Suspect]
     Active Substance: WARFARIN
     Indication: ATRIAL FIBRILLATION
     Dosage: 5-6MG.
     Route: 048
  3. BISOPROLOL FUMARATE. [Concomitant]
     Active Substance: BISOPROLOL FUMARATE
  4. DILTIAZEM. [Concomitant]
     Active Substance: DILTIAZEM
  5. OMEPRAZOLE SODIUM [Concomitant]
     Active Substance: OMEPRAZOLE SODIUM
  6. FERROUS FUMARATE [Concomitant]
     Active Substance: FERROUS FUMARATE
  7. MIRTAZAPINE HEMIHYDRATE [Concomitant]
     Active Substance: MIRTAZAPINE
  8. ATORVASTATIN CALCIUM. [Concomitant]
     Active Substance: ATORVASTATIN CALCIUM
  9. ALLOPURINOL. [Concomitant]
     Active Substance: ALLOPURINOL
  10. CASSIA [Concomitant]
  11. EPLERENONE. [Concomitant]
     Active Substance: EPLERENONE
  12. STEROIDS UNSPECIFIED [Concomitant]
     Active Substance: UNSPECIFIED INGREDIENT
  13. AMOXICILLIN. [Concomitant]
     Active Substance: AMOXICILLIN

REACTIONS (2)
  - International normalised ratio increased [Recovered/Resolved]
  - Dyspnoea [Unknown]
